FAERS Safety Report 9995127 (Version 3)
Quarter: 2014Q1

REPORT INFORMATION
  Report Type: Spontaneous
  Country: US (occurrence: US)
  Receive Date: 20140311
  Receipt Date: 20140328
  Transmission Date: 20141002
  Serious: Yes (Death, Hospitalization, Other)
  Sender: FDA-Public Use
  Company Number: US-BAXTER-2014BAX011149

PATIENT
  Sex: Male

DRUGS (4)
  1. DIANEAL LOW CALCIUM (ULTRABAG) [Suspect]
     Indication: PERITONEAL DIALYSIS
     Route: 033
     Dates: end: 20140312
  2. DIANEAL LOW CALCIUM (ULTRABAG) [Suspect]
     Route: 033
  3. EXTRANEAL [Suspect]
     Indication: PERITONEAL DIALYSIS
     Route: 033
  4. EXTRANEAL [Suspect]
     Route: 033
     Dates: end: 20140312

REACTIONS (5)
  - Respiratory failure [Fatal]
  - Peritonitis bacterial [Fatal]
  - Colitis [Unknown]
  - Dementia [Unknown]
  - Peritoneal dialysis complication [Unknown]
